FAERS Safety Report 5815424-5 (Version None)
Quarter: 2008Q3

REPORT INFORMATION
  Report Type: 
  Country: None (occurrence: None)
  Receive Date: 20080718
  Receipt Date: 20080710
  Transmission Date: 20090109
  Serious: Yes (Other)
  Sender: FDA-Public Use
  Company Number: US-ABBOTT-08P-163-0462145-00

PATIENT
  Sex: Female
  Weight: 61.29 kg

DRUGS (13)
  1. HUMIRA [Suspect]
     Indication: ANKYLOSING SPONDYLITIS
     Route: 050
     Dates: start: 20080401
  2. VICODIN [Interacting]
     Indication: PAIN
     Dosage: 5/500, 3 IN 1 D, AS REQUIRED
     Route: 048
  3. LEXAPRO [Interacting]
     Indication: DEPRESSION
     Route: 048
     Dates: start: 20071023
  4. CHLORMEZANONE [Interacting]
     Indication: DRUG USE FOR UNKNOWN INDICATION
  5. AMITRIPTYLINE HCL [Interacting]
     Indication: MIGRAINE PROPHYLAXIS
     Dosage: 75MG QHS
     Route: 048
     Dates: start: 20070501
  6. RIZATRIPTAN BENZOATE [Interacting]
     Indication: HEADACHE
     Route: 048
     Dates: start: 20070501
  7. PREGABALIN [Interacting]
     Indication: DRUG USE FOR UNKNOWN INDICATION
     Route: 048
     Dates: start: 20070601
  8. CELECOXIB [Interacting]
     Indication: ANKYLOSING SPONDYLITIS
     Route: 048
     Dates: start: 20070601
  9. CYCLOBENZAPRINE HCL [Interacting]
     Indication: MUSCLE SPASMS
     Route: 048
  10. BUPROPION HCL [Interacting]
     Indication: DEPRESSION
     Route: 048
     Dates: start: 20080110
  11. AMINOCYCLINE [Interacting]
     Indication: ACNE
     Route: 048
     Dates: start: 20080313
  12. CLINDAMYCIN [Interacting]
     Indication: LOCALISED INFECTION
     Route: 048
  13. TETANUS [Interacting]
     Indication: TETANUS IMMUNISATION
     Route: 030
     Dates: start: 20080701, end: 20080701

REACTIONS (11)
  - ASTHENIA [None]
  - CONFUSIONAL STATE [None]
  - DIZZINESS [None]
  - DRUG INTERACTION [None]
  - FEELING ABNORMAL [None]
  - LIMB INJURY [None]
  - LOCALISED INFECTION [None]
  - LOSS OF CONSCIOUSNESS [None]
  - PAIN IN EXTREMITY [None]
  - TREMOR [None]
  - WITHDRAWAL SYNDROME [None]
